FAERS Safety Report 7955075-X (Version None)
Quarter: 2011Q4

REPORT INFORMATION
  Report Type: 
  Country: None (occurrence: None)
  Receive Date: 20111202
  Receipt Date: 20111130
  Transmission Date: 20120403
  Serious: Yes (Death)
  Sender: FDA-Public Use
  Company Number: FR-ROCHE-1017984

PATIENT
  Age: 72 Year
  Sex: Male

DRUGS (3)
  1. AVASTIN [Suspect]
     Indication: COLON CANCER
     Route: 042
     Dates: start: 20110304
  2. FLUOROURACIL [Concomitant]
     Dates: start: 20110304, end: 20110306
  3. FLUOROURACIL [Concomitant]
     Route: 042
     Dates: start: 20110304, end: 20110306

REACTIONS (1)
  - INTESTINAL INFARCTION [None]
